FAERS Safety Report 9763568 (Version 2)
Quarter: 2014Q1

REPORT INFORMATION
  Report Type: Report from Study
  Country: JP (occurrence: JP)
  Receive Date: 20131216
  Receipt Date: 20140127
  Transmission Date: 20141002
  Serious: Yes (Death, Hospitalization, Other)
  Sender: FDA-Public Use
  Company Number: JP-TAKEDA-2013TUS003168

PATIENT
  Sex: 0

DRUGS (14)
  1. FEBURIC [Suspect]
     Indication: HYPERURICAEMIA
     Dosage: 10 MG, QD
     Route: 048
     Dates: start: 20121011, end: 20130522
  2. CIBENOL [Concomitant]
     Indication: ATRIAL FIBRILLATION
     Dosage: 200 MG, QD
     Route: 048
     Dates: start: 20121008, end: 20130522
  3. LASIX                              /00032601/ [Concomitant]
     Indication: CARDIAC FAILURE CHRONIC
     Dosage: 20 MG, QD
     Route: 048
     Dates: start: 20030508, end: 20130522
  4. ISALON [Concomitant]
     Indication: GASTRITIS PROPHYLAXIS
     Dosage: 300 MG, QD
     Route: 048
     Dates: start: 20060215, end: 20130522
  5. THYRADIN S [Concomitant]
     Indication: HYPOTHYROIDISM
     Dosage: 100 ?G, QD
     Route: 048
     Dates: start: 20061010, end: 20130522
  6. MAGMITT [Concomitant]
     Indication: CONSTIPATION PROPHYLAXIS
     Dosage: 750 MG, QD
     Route: 048
     Dates: start: 20030815, end: 20130522
  7. SENNOSIDE                          /00571901/ [Concomitant]
     Indication: CONSTIPATION PROPHYLAXIS
     Dosage: UNK
     Route: 048
     Dates: start: 20041115, end: 20130522
  8. RIZE                               /00624801/ [Concomitant]
     Indication: INSOMNIA
     Dosage: 5 MG, QD
     Route: 048
     Dates: start: 20061012, end: 20130522
  9. PREDONINE                          /00016201/ [Concomitant]
     Indication: EBSTEIN^S ANOMALY
     Dosage: 10 MG, QD
     Route: 048
     Dates: start: 20120928, end: 20130522
  10. CRESTOR [Concomitant]
     Indication: HYPERLIPIDAEMIA
     Dosage: 2.5 MG, QD
     Route: 048
     Dates: start: 20120915, end: 20130522
  11. SOTACOR [Concomitant]
     Indication: ATRIAL FIBRILLATION
     Dosage: 40 MG, QD
     Route: 048
     Dates: start: 20060614, end: 20130522
  12. WARFARIN [Concomitant]
     Indication: ATRIAL FIBRILLATION
     Dosage: 1.5 MG, QD
     Route: 048
     Dates: start: 20060630, end: 20130522
  13. FRANDOL S [Concomitant]
     Indication: EBSTEIN^S ANOMALY
     Dosage: 40 MG, QD
     Route: 048
     Dates: start: 20030703, end: 20130522
  14. ALDACTONE A [Concomitant]
     Indication: CARDIAC FAILURE CHRONIC
     Dosage: 50 MG, QD
     Route: 048
     Dates: start: 20130416, end: 20130522

REACTIONS (1)
  - Cardiac failure [Fatal]
